FAERS Safety Report 5691429-2 (Version None)
Quarter: 2008Q2

REPORT INFORMATION
  Report Type: 
  Country: None (occurrence: None)
  Receive Date: 20080401
  Receipt Date: 20080401
  Transmission Date: 20081010
  Serious: Yes (Other)
  Sender: FDA-Public Use
  Company Number: None

PATIENT
  Age: 44 Year
  Sex: Female
  Weight: 80.7403 kg

DRUGS (1)
  1. LIPITOR [Suspect]
     Indication: BLOOD TRIGLYCERIDES INCREASED
     Dosage: 20 MG 1 PER DAY
     Dates: start: 20040101, end: 20060101

REACTIONS (7)
  - BALANCE DISORDER [None]
  - COORDINATION ABNORMAL [None]
  - DYSKINESIA [None]
  - GAIT DISTURBANCE [None]
  - MUSCLE DISORDER [None]
  - PAIN IN EXTREMITY [None]
  - POSTURE ABNORMAL [None]
